FAERS Safety Report 24913710 (Version 5)
Quarter: 2025Q4

REPORT INFORMATION
  Report Type: Spontaneous
  Country: JP (occurrence: JP)
  Receive Date: 20250202
  Receipt Date: 20251224
  Transmission Date: 20260118
  Serious: Yes (Death, Hospitalization)
  Sender: JAZZ
  Company Number: JP-JAZZ PHARMACEUTICALS-2025-JP-002865

PATIENT
  Age: 57 Year
  Sex: Male
  Weight: 63.2 kg

DRUGS (5)
  1. VYXEOS [Suspect]
     Active Substance: CYTARABINE\DAUNORUBICIN
     Indication: Acute myeloid leukaemia
     Dosage: 100 UNITS/METER SQ DAILY
     Dates: start: 20241115, end: 20241119
  2. VYXEOS [Suspect]
     Active Substance: CYTARABINE\DAUNORUBICIN
     Dosage: UNK
     Dates: start: 20241115, end: 20241115
  3. VYXEOS [Suspect]
     Active Substance: CYTARABINE\DAUNORUBICIN
     Dosage: UNK
     Dates: start: 20241117, end: 20241117
  4. VYXEOS [Suspect]
     Active Substance: CYTARABINE\DAUNORUBICIN
     Dosage: UNK
     Dates: start: 20241119, end: 20241119
  5. MEROPENEM [Suspect]
     Active Substance: MEROPENEM
     Indication: Product used for unknown indication
     Dosage: UNK

REACTIONS (8)
  - Organising pneumonia [Fatal]
  - Pneumonia [Fatal]
  - Febrile neutropenia [Recovered/Resolved]
  - Aspartate aminotransferase increased [Recovered/Resolved]
  - Alanine aminotransferase increased [Recovered/Resolved]
  - Acute myeloid leukaemia [Not Recovered/Not Resolved]
  - Blood alkaline phosphatase increased [Recovered/Resolved]
  - Gamma-glutamyltransferase increased [Recovered/Resolved]

NARRATIVE: CASE EVENT DATE: 20241121
